FAERS Safety Report 4389701-1 (Version None)
Quarter: 2004Q2

REPORT INFORMATION
  Report Type: 
  Country: None (occurrence: None)
  Receive Date: 20040630
  Receipt Date: 20040614
  Transmission Date: 20050107
  Serious: No
  Sender: FDA-Public Use
  Company Number: 04H-163-0263831-00

PATIENT
  Sex: Female

DRUGS (1)
  1. QUELICIN [Suspect]
     Dosage: 80 MG, ONCE, EPIDURAL
     Route: 008
     Dates: start: 20040101, end: 20040101

REACTIONS (2)
  - GENERAL ANAESTHESIA [None]
  - MEDICATION ERROR [None]
